FAERS Safety Report 18705254 (Version 4)
Quarter: 2021Q2

REPORT INFORMATION
  Report Type: Report from Study
  Country: DE (occurrence: DE)
  Receive Date: 20210106
  Receipt Date: 20210616
  Transmission Date: 20210717
  Serious: Yes (Hospitalization)
  Sender: FDA-Public Use
  Company Number: DE-ROCHE-2742131

PATIENT
  Age: 69 Year
  Sex: Female
  Weight: 59 kg

DRUGS (8)
  1. L?THYROXINE [Concomitant]
     Active Substance: LEVOTHYROXINE
     Indication: HYPERTHYROIDISM
     Route: 048
     Dates: start: 20150707
  2. ATEZOLIZUMAB. [Suspect]
     Active Substance: ATEZOLIZUMAB
     Indication: RENAL CELL CARCINOMA
     Dosage: ON 08/DEC/2020, RECEIVED MOST RECENT DOSE OF ATEZOLIZUMAB 1200 MG.
     Route: 042
     Dates: start: 20181211
  3. RAMIPRIL. [Concomitant]
     Active Substance: RAMIPRIL
     Indication: HYPERTENSION
     Route: 048
     Dates: start: 202011, end: 20210108
  4. L?THYROXINE [Concomitant]
     Active Substance: LEVOTHYROXINE
     Dosage: 125
     Route: 048
     Dates: start: 20210109
  5. RAMIPRIL. [Concomitant]
     Active Substance: RAMIPRIL
     Route: 048
     Dates: start: 20210109
  6. L?THYROXINE [Concomitant]
     Active Substance: LEVOTHYROXINE
     Dosage: 150
     Route: 048
     Dates: start: 20201229, end: 20210108
  7. BEVACIZUMAB. [Suspect]
     Active Substance: BEVACIZUMAB
     Indication: RENAL CELL CARCINOMA
     Dosage: ON 08/DEC/2020, RECEIVED MOST RECENT DOSE OF BEVACIZUMAB 885 MG.
     Route: 042
     Dates: start: 20181211
  8. AMLODIPIN [Concomitant]
     Active Substance: AMLODIPINE BESYLATE
     Indication: HYPERTENSION
     Route: 048
     Dates: start: 202011

REACTIONS (1)
  - Nephrotic syndrome [Recovering/Resolving]

NARRATIVE: CASE EVENT DATE: 20201229
